FAERS Safety Report 8738734 (Version 2)
Quarter: 2012Q4

REPORT INFORMATION
  Report Type: 
  Country: PT (occurrence: PT)
  Receive Date: 20120823
  Receipt Date: 20120829
  Transmission Date: 20130627
  Serious: Yes (Hospitalization, Disabling, Other)
  Sender: FDA-Public Use
  Company Number: PT-PFIZER INC-2012201854

PATIENT
  Age: 66 Year
  Sex: Male
  Weight: 71 kg

DRUGS (6)
  1. SUTENT [Suspect]
     Indication: METASTATIC RENAL CELL CARCINOMA
     Dosage: 25 mg 1x/day (D1-D28 in cycles of 42days)
     Route: 048
     Dates: start: 20071206, end: 20120622
  2. FUROSEMID [Concomitant]
     Indication: HYPERTENSION
     Dosage: 40 mg, 1x/day
     Route: 048
  3. RISPERIDONE [Concomitant]
     Indication: DEPRESSION
     Dosage: 1 mg, 1x/day
     Route: 048
  4. EUTIROX [Concomitant]
     Indication: SECONDARY HYPOTHYROIDISM
     Dosage: 0.1 mg, 1x/day
     Route: 048
     Dates: start: 200904
  5. SERTRALINE [Concomitant]
     Indication: DEPRESSION
     Dosage: 50 mg, 1x/day
     Route: 048
  6. AMLODIPINE [Concomitant]
     Indication: HYPERTENSION
     Dosage: 10 mg, 1x/day
     Route: 048
     Dates: start: 2008

REACTIONS (5)
  - Acute coronary syndrome [Recovered/Resolved with Sequelae]
  - Electrocardiogram ST segment elevation [Recovered/Resolved with Sequelae]
  - Arterial thrombosis [Not Recovered/Not Resolved]
  - Hypertension [Recovered/Resolved]
  - Thrombocytopenia [Unknown]
